FAERS Safety Report 4587906-8 (Version None)
Quarter: 2005Q1

REPORT INFORMATION
  Report Type: 
  Country: None (occurrence: None)
  Receive Date: 20050219
  Receipt Date: 20050209
  Transmission Date: 20050727
  Serious: Yes (Hospitalization)
  Sender: FDA-Public Use
  Company Number: PHEH2005US01914

PATIENT
  Age: 59 Year
  Sex: Female

DRUGS (1)
  1. ZOMETA [Suspect]
     Indication: OSTEOPOROSIS
     Dosage: ONE TIME ONLY INFUSIONS
     Dates: start: 20050126, end: 20050126

REACTIONS (5)
  - ARTHRITIS [None]
  - ARTHRITIS INFECTIVE [None]
  - CHONDROCALCINOSIS PYROPHOSPHATE [None]
  - OEDEMA PERIPHERAL [None]
  - WOUND DEBRIDEMENT [None]
